FAERS Safety Report 4530575-3 (Version None)
Quarter: 2004Q4

REPORT INFORMATION
  Report Type: 
  Country: None (occurrence: None)
  Receive Date: 20041216
  Receipt Date: 20041208
  Transmission Date: 20050328
  Serious: Yes (Other)
  Sender: FDA-Public Use
  Company Number: 2004-12-0002

PATIENT
  Age: 69 Year
  Sex: Female

DRUGS (2)
  1. BECLOMETHASONE DIPROPIONATE [Suspect]
     Indication: BRONCHITIS CHRONIC
     Dosage: 0.15MG DAILY INHALATION
     Route: 055
  2. TERBUTALINE [Suspect]
     Indication: BRONCHITIS CHRONIC

REACTIONS (4)
  - IMPLANT SITE REACTION [None]
  - JOINT RANGE OF MOTION DECREASED [None]
  - OSTEONECROSIS [None]
  - THROMBOSIS [None]
